FAERS Safety Report 8609491-3 (Version None)
Quarter: 2012Q3

REPORT INFORMATION
  Report Type: 
  Country: None (occurrence: None)
  Receive Date: 20120821
  Receipt Date: 20120814
  Transmission Date: 20120928
  Serious: Yes (Hospitalization)
  Sender: FDA-Public Use
  Company Number: NL-GILEAD-2012-0059025

PATIENT
  Sex: Female

DRUGS (9)
  1. AZTREONAM [Suspect]
     Indication: BRONCHIECTASIS
     Dosage: 75 MG, TID
     Route: 055
     Dates: start: 20120619, end: 20120726
  2. BISACODYL [Concomitant]
  3. ATROVENT [Concomitant]
  4. RISEDRONATE SODIUM [Concomitant]
  5. ALBUTEROL SULATE [Concomitant]
  6. NITROFURANTOIN [Concomitant]
  7. PREDNISOLONE [Concomitant]
  8. METOPROLOL TARTRATE [Concomitant]
  9. IMIGRAN                            /01044801/ [Concomitant]

REACTIONS (1)
  - BRONCHIECTASIS [None]
